FAERS Safety Report 4861249-7 (Version None)
Quarter: 2005Q4

REPORT INFORMATION
  Report Type: 
  Country: None (occurrence: None)
  Receive Date: 20051220
  Receipt Date: 20050725
  Transmission Date: 20060501
  Serious: Yes (Hospitalization)
  Sender: FDA-Public Use
  Company Number: US-MERCK-0507USA03911

PATIENT
  Age: 50 Year
  Sex: Male
  Weight: 75 kg

DRUGS (3)
  1. VIOXX [Suspect]
     Indication: ARTHRITIS
     Route: 048
     Dates: start: 20020501, end: 20040701
  2. TRICOR [Concomitant]
     Route: 065
  3. HYDROCODONE BITARTRATE [Concomitant]
     Route: 065

REACTIONS (11)
  - ACUTE MYOCARDIAL INFARCTION [None]
  - ANXIETY [None]
  - BACK PAIN [None]
  - CORONARY ARTERY DISEASE [None]
  - DEPRESSION [None]
  - HYPERTENSIVE CARDIOMYOPATHY [None]
  - INSOMNIA [None]
  - MITRAL VALVE INCOMPETENCE [None]
  - PAIN IN EXTREMITY [None]
  - TRICUSPID VALVE INCOMPETENCE [None]
  - VENTRICULAR HYPERTROPHY [None]
